FAERS Safety Report 25644834 (Version 1)
Quarter: 2025Q3

REPORT INFORMATION
  Report Type: Spontaneous
  Country: US (occurrence: None)
  Receive Date: 20250804
  Receipt Date: 20250804
  Transmission Date: 20251021
  Serious: Yes (Hospitalization)
  Sender: FDA-CTU
  Company Number: None

PATIENT
  Age: 64 Year
  Sex: Male

DRUGS (9)
  1. AMBRISENTAN [Suspect]
     Active Substance: AMBRISENTAN
     Indication: Pulmonary hypertension
  2. ALENDRONATE SODIUM [Concomitant]
     Active Substance: ALENDRONATE SODIUM
  3. TADALAFIL [Concomitant]
     Active Substance: TADALAFIL
  4. PREDNISONE [Concomitant]
     Active Substance: PREDNISONE
  5. ITRACONAZOLE [Concomitant]
     Active Substance: ITRACONAZOLE
  6. ALLOPURINOL [Concomitant]
     Active Substance: ALLOPURINOL
  7. PANTOPRAZOLE SODIUM [Concomitant]
     Active Substance: PANTOPRAZOLE SODIUM
  8. FOLIC ACID [Concomitant]
     Active Substance: FOLIC ACID
  9. METHOTREXATE [Concomitant]
     Active Substance: METHOTREXATE

REACTIONS (4)
  - Sarcoidosis [None]
  - Bronchitis [None]
  - Product dose omission issue [None]
  - Pneumothorax [None]

NARRATIVE: CASE EVENT DATE: 20250801
